FAERS Safety Report 4351073-6 (Version None)
Quarter: 2004Q2

REPORT INFORMATION
  Report Type: 
  Country: None (occurrence: None)
  Receive Date: 20040427
  Receipt Date: 20040412
  Transmission Date: 20050107
  Serious: Yes (Hospitalization, Disabling)
  Sender: FDA-Public Use
  Company Number: 2004AP02026

PATIENT
  Age: 80 Year
  Sex: Male

DRUGS (10)
  1. OMEPRAZOLE [Suspect]
     Indication: GASTRIC ULCER
     Dosage: 20 MG DAILY; PO
     Route: 048
     Dates: start: 20040316, end: 20040330
  2. ACETAMINOPHEN [Suspect]
     Indication: UPPER RESPIRATORY TRACT INFECTION
     Dosage: 200 MG DAILY; PO
     Route: 048
     Dates: start: 20040323, end: 20040330
  3. CEFZON [Suspect]
     Indication: UPPER RESPIRATORY TRACT INFECTION
     Dosage: 300 MG DAILY; PO
     Route: 048
     Dates: start: 20040323, end: 20040330
  4. PA [Suspect]
     Indication: UPPER RESPIRATORY TRACT INFECTION
     Dosage: 3 DF DAILY; PO
     Route: 048
     Dates: start: 20040323, end: 20040330
  5. LAVIN [Suspect]
     Indication: GASTRIC ULCER
     Dosage: 300 MG DAILY; PO
     Route: 048
     Dates: start: 20040316, end: 20040330
  6. LIPITOR [Concomitant]
  7. PREDNISOLONE [Concomitant]
  8. BLOPRESS [Concomitant]
  9. FAMOTID [Concomitant]
  10. ADALAT [Concomitant]

REACTIONS (5)
  - BLOOD POTASSIUM INCREASED [None]
  - DERMATITIS EXFOLIATIVE [None]
  - DISEASE RECURRENCE [None]
  - DRUG ERUPTION [None]
  - RENAL FAILURE ACUTE [None]
